FAERS Safety Report 11026449 (Version 2)
Quarter: 2020Q1

REPORT INFORMATION
  Report Type: Spontaneous
  Country: US (occurrence: US)
  Receive Date: 20150414
  Receipt Date: 20200205
  Transmission Date: 20200409
  Serious: Yes (Death, Other)
  Sender: FDA-Public Use
  Company Number: US-PURDUE PHARMA-USA-2015-0122433

PATIENT
  Age: 41 Year
  Sex: Male

DRUGS (1)
  1. OXYCODONE HCL CR TABLETS (SIMILAR TO NDA 22-272) [Suspect]
     Active Substance: OXYCODONE HYDROCHLORIDE
     Indication: PRODUCT USED FOR UNKNOWN INDICATION
     Route: 048

REACTIONS (5)
  - Drug withdrawal syndrome [Unknown]
  - Drug dependence [Unknown]
  - Aggression [Unknown]
  - Drug abuse [Unknown]
  - Gun shot wound [Fatal]

NARRATIVE: CASE EVENT DATE: 20111026
